FAERS Safety Report 14676969 (Version 2)
Quarter: 2018Q2

REPORT INFORMATION
  Report Type: Spontaneous
  Country: US (occurrence: US)
  Receive Date: 20180324
  Receipt Date: 20180420
  Transmission Date: 20180711
  Serious: No
  Sender: FDA-Public Use
  Company Number: US-JNJFOC-20180316182

PATIENT
  Sex: Male

DRUGS (6)
  1. RISPERDAL [Suspect]
     Active Substance: RISPERIDONE
     Indication: CATATONIA
     Route: 048
     Dates: start: 20100224
  2. RISPERDAL [Suspect]
     Active Substance: RISPERIDONE
     Indication: CATATONIA
     Route: 048
     Dates: start: 201101, end: 201103
  3. RISPERDAL [Suspect]
     Active Substance: RISPERIDONE
     Indication: DEPRESSION
     Route: 048
     Dates: start: 201101, end: 201103
  4. RISPERDAL [Suspect]
     Active Substance: RISPERIDONE
     Indication: DEPRESSION
     Route: 048
     Dates: start: 201003, end: 201006
  5. RISPERDAL [Suspect]
     Active Substance: RISPERIDONE
     Indication: DEPRESSION
     Route: 048
     Dates: start: 20100224
  6. RISPERDAL [Suspect]
     Active Substance: RISPERIDONE
     Indication: CATATONIA
     Route: 048
     Dates: start: 201003, end: 201006

REACTIONS (2)
  - Hyperprolactinaemia [Unknown]
  - Gynaecomastia [Unknown]
